FAERS Safety Report 6479948-2 (Version None)
Quarter: 2009Q4

REPORT INFORMATION
  Report Type: 
  Country: None (occurrence: None)
  Receive Date: 20091208
  Receipt Date: 20091117
  Transmission Date: 20100525
  Serious: Yes (Life-Threatening, Other)
  Sender: FDA-Public Use
  Company Number: GB-SANOFI-AVENTIS-2009SA002926

PATIENT
  Age: 77 Year
  Sex: Female

DRUGS (8)
  1. FRUSEMIDE [Suspect]
     Indication: DRUG USE FOR UNKNOWN INDICATION
     Route: 048
  2. VANCOMYCIN [Suspect]
     Indication: WOUND INFECTION
     Route: 042
  3. AMILORIDE HYDROCHLORIDE [Concomitant]
     Indication: DRUG USE FOR UNKNOWN INDICATION
  4. ATENOLOL [Concomitant]
  5. BENDROFLUMETHIAZIDE [Concomitant]
     Indication: HYPERTENSION
  6. OPIOIDS [Concomitant]
     Indication: PAIN
  7. RAMIPRIL [Concomitant]
     Indication: HYPERTENSION
  8. SPIRONOLACTONE [Concomitant]

REACTIONS (4)
  - CARDIAC ARREST [None]
  - DRUG INTERACTION [None]
  - HYPOKALAEMIA [None]
  - VENTRICULAR TACHYCARDIA [None]
